FAERS Safety Report 8964524 (Version 1)
Quarter: 2012Q4

REPORT INFORMATION
  Report Type: 
  Country: CA (occurrence: CA)
  Receive Date: 20121214
  Receipt Date: 20121214
  Transmission Date: 20130627
  Serious: Yes (Death, Other)
  Sender: FDA-Public Use
  Company Number: CA-ASTRAZENECA-2003UW10892

PATIENT
  Age: 15 Year
  Sex: Male

DRUGS (5)
  1. SEROQUEL [Suspect]
     Indication: SCHIZOPHRENIA
     Route: 048
  2. SEROQUEL [Suspect]
     Indication: BIPOLAR DISORDER
     Route: 048
  3. LITHIUM [Concomitant]
  4. EPIVAL [Concomitant]
  5. IMOVANE [Concomitant]

REACTIONS (4)
  - Overdose [Fatal]
  - Completed suicide [Fatal]
  - Heart rate irregular [Unknown]
  - Convulsion [Unknown]
